FAERS Safety Report 17259863 (Version 1)
Quarter: 2020Q1

REPORT INFORMATION
  Report Type: Report from Study
  Country: IT (occurrence: IT)
  Receive Date: 20200111
  Receipt Date: 20200111
  Transmission Date: 20200409
  Serious: Yes (Other)
  Sender: FDA-Public Use
  Company Number: IT-TEVA-2020-IT-1164099

PATIENT
  Age: 52 Year
  Sex: Male

DRUGS (8)
  1. TAVOR [Concomitant]
  2. METHADONE HYDROCHLORIDE. [Concomitant]
     Active Substance: METHADONE HYDROCHLORIDE
     Dosage: 30 MILLIGRAM
  3. PARIET [Concomitant]
     Active Substance: RABEPRAZOLE SODIUM
  4. GABAPENTIN. [Suspect]
     Active Substance: GABAPENTIN
     Indication: SUICIDE ATTEMPT
     Dosage: 300 MILLIGRAM
     Route: 048
     Dates: start: 20190818, end: 20190818
  5. NOZINAN 25 MG COMPRESSE RIVESTITE CON FILM [Concomitant]
     Active Substance: LEVOMEPROMAZINE
  6. RIFACOL 200 MG COMPRESSE RIVESTITE CON FILM [Concomitant]
     Active Substance: RIFAXIMIN
     Dosage: 400 MILLIGRAM
  7. RIVOTRIL [Suspect]
     Active Substance: CLONAZEPAM
     Indication: SUICIDE ATTEMPT
     Dosage: 4 DF
     Dates: start: 20190818, end: 20190818
  8. INVEGA 6 MG PROLONGED-RELEASE TABLETS [Concomitant]

REACTIONS (3)
  - Dysarthria [Recovering/Resolving]
  - Suicide attempt [Recovering/Resolving]
  - Sopor [Recovering/Resolving]

NARRATIVE: CASE EVENT DATE: 20190818
